FAERS Safety Report 5958420-X (Version None)
Quarter: 2008Q4

REPORT INFORMATION
  Report Type: 
  Country: None (occurrence: None)
  Receive Date: 20081119
  Receipt Date: 20080820
  Transmission Date: 20090506
  Serious: Yes (Other)
  Sender: FDA-Public Use
  Company Number: PHHY2008JP18674

PATIENT
  Age: 20 Year
  Sex: Female

DRUGS (7)
  1. NEORAL [Suspect]
     Indication: BONE MARROW TRANSPLANT
     Dosage: 40 MG
  2. NEORAL [Suspect]
     Indication: PROPHYLAXIS AGAINST GRAFT VERSUS HOST DISEASE
  3. NEORAL [Suspect]
     Indication: CHRONIC GRAFT VERSUS HOST DISEASE
  4. CYCLOPHOSPHAMIDE [Concomitant]
     Indication: BONE MARROW TRANSPLANT
  5. METHOTREXATE [Concomitant]
     Indication: BONE MARROW TRANSPLANT
  6. PREDNISOLONE [Concomitant]
     Indication: BONE MARROW TRANSPLANT
     Dosage: 10 MG
  7. PREDNISOLONE [Concomitant]
     Indication: CHRONIC GRAFT VERSUS HOST DISEASE

REACTIONS (11)
  - ABDOMINAL PAIN [None]
  - ACUTE GRAFT VERSUS HOST DISEASE IN SKIN [None]
  - BRONCHIECTASIS [None]
  - COUGH [None]
  - DIARRHOEA [None]
  - DYSPNOEA EXERTIONAL [None]
  - OBLITERATIVE BRONCHIOLITIS [None]
  - PLEURODESIS [None]
  - PNEUMATOSIS INTESTINALIS [None]
  - PNEUMOTHORAX [None]
  - PYREXIA [None]
